FAERS Safety Report 10569082 (Version 1)
Quarter: 2014Q4

REPORT INFORMATION
  Report Type: Spontaneous
  Country: IT (occurrence: IT)
  Receive Date: 20141106
  Receipt Date: 20141106
  Transmission Date: 20150529
  Serious: Yes (Hospitalization)
  Sender: FDA-Public Use
  Company Number: IT-ACTAVIS-2014-23547

PATIENT
  Age: 55 Year
  Sex: Female

DRUGS (4)
  1. KEPPRA [Concomitant]
     Active Substance: LEVETIRACETAM
     Indication: PRODUCT USED FOR UNKNOWN INDICATION
     Dosage: 500 MG, UNKNOWN
     Route: 048
     Dates: start: 20140820, end: 20140929
  2. DESAMETASONE FOSF                  /00016002/ [Concomitant]
     Indication: PRODUCT USED FOR UNKNOWN INDICATION
     Dosage: SOLUTION FOR INJECTION UNK
     Route: 030
  3. ALPRAZOLAM (UNKNOWN) [Suspect]
     Active Substance: ALPRAZOLAM
     Indication: DRUG ABUSE
     Dosage: 20 ML, TOTAL
     Route: 048
  4. ETIZOLAM [Suspect]
     Active Substance: ETIZOLAM
     Indication: DRUG ABUSE
     Dosage: 30 ML, TOTAL
     Route: 048

REACTIONS (3)
  - Sopor [Recovered/Resolved]
  - Altered state of consciousness [Recovered/Resolved]
  - Drug abuse [Recovered/Resolved]

NARRATIVE: CASE EVENT DATE: 20140929
